FAERS Safety Report 21038426 (Version 1)
Quarter: 2022Q3

REPORT INFORMATION
  Report Type: Report from Study
  Country: US (occurrence: US)
  Receive Date: 20220704
  Receipt Date: 20220704
  Transmission Date: 20221027
  Serious: Yes (Other)
  Sender: FDA-Public Use
  Company Number: US-BAUSCH-BL-2022-016967

PATIENT
  Age: 82 Year
  Sex: Female
  Weight: 43.7 kg

DRUGS (12)
  1. XIFAXAN [Suspect]
     Active Substance: RIFAXIMIN
     Indication: Irritable bowel syndrome
     Dosage: PRESCRIBED 3 TIMES A DAY BUT PATIENT DOWN TO 1-2 TIMES A DAY
     Route: 048
  2. TYLENOL EXTRA STRENGTH [Concomitant]
     Active Substance: ACETAMINOPHEN
     Indication: Product used for unknown indication
  3. COREG [Concomitant]
     Active Substance: CARVEDILOL
     Indication: Product used for unknown indication
     Route: 048
  4. ARICEPT [Concomitant]
     Active Substance: DONEPEZIL HYDROCHLORIDE
     Indication: Product used for unknown indication
     Dosage: IN EVENING
     Route: 048
  5. TRICOR [Concomitant]
     Active Substance: FENOFIBRATE
     Indication: Product used for unknown indication
     Route: 048
  6. NEURONTIN [Concomitant]
     Active Substance: GABAPENTIN
     Indication: Product used for unknown indication
     Route: 048
  7. JANUVIA [Concomitant]
     Active Substance: SITAGLIPTIN PHOSPHATE
     Indication: Product used for unknown indication
     Route: 048
  8. NAMENDA [Concomitant]
     Active Substance: MEMANTINE HYDROCHLORIDE
     Indication: Product used for unknown indication
     Route: 048
  9. BRILINTA [Concomitant]
     Active Substance: TICAGRELOR
     Indication: Product used for unknown indication
     Route: 048
  10. DESYREL [Concomitant]
     Active Substance: TRAZODONE HYDROCHLORIDE
     Indication: Product used for unknown indication
     Dosage: AT BEDTIME AS NEEDED
     Route: 048
  11. RETACRIT [Concomitant]
     Active Substance: EPOETIN ALFA-EPBX
     Indication: Product used for unknown indication
     Dosage: 3000 UNIT/ML INJECTION. INJECT 3000  UNITS UNDER THE SKIN EVERY 14 DAYS
     Route: 058
  12. NITROSTAT [Concomitant]
     Active Substance: NITROGLYCERIN
     Indication: Product used for unknown indication
     Route: 060

REACTIONS (14)
  - Transfusion [Unknown]
  - Arthralgia [Unknown]
  - Weight decreased [Unknown]
  - Abdominal tenderness [Unknown]
  - Gait disturbance [Unknown]
  - Appetite disorder [Unknown]
  - Fatigue [Unknown]
  - Abdominal pain lower [Unknown]
  - Back pain [Unknown]
  - Dizziness [Unknown]
  - Asthenia [Unknown]
  - Intentional product use issue [Unknown]
  - Inability to afford medication [Unknown]
  - Therapy interrupted [Unknown]
